FAERS Safety Report 5210550-6 (Version None)
Quarter: 2007Q1

REPORT INFORMATION
  Report Type: 
  Country: None (occurrence: None)
  Receive Date: 20070117
  Receipt Date: 20070115
  Transmission Date: 20070707
  Serious: Yes (Death)
  Sender: FDA-Public Use
  Company Number: PHNU2006DE02349

PATIENT
  Sex: Male
  Weight: 115 kg

DRUGS (5)
  1. DICLOFENAC SODIUM [Suspect]
     Indication: BACK PAIN
     Dosage: UNK, ONCE/SINGLE
     Route: 030
     Dates: start: 20051101, end: 20051101
  2. DEXAMETHASONE [Suspect]
     Indication: BACK PAIN
     Dosage: UNK, ONCE/SINGLE
     Route: 030
     Dates: start: 20051101, end: 20051101
  3. VOLTAREN DISPERS ^NOVARTIS^ [Concomitant]
     Indication: BACK PAIN
     Route: 048
  4. TRAMADOL HCL [Concomitant]
     Indication: BACK PAIN
     Route: 048
  5. TETRAZEPAM [Concomitant]
     Indication: BACK PAIN
     Route: 048

REACTIONS (2)
  - PACHYMENINGITIS [None]
  - SEPSIS [None]
